FAERS Safety Report 20883369 (Version 3)
Quarter: 2022Q3

REPORT INFORMATION
  Report Type: Spontaneous
  Country: US (occurrence: US)
  Receive Date: 20220527
  Receipt Date: 20220719
  Transmission Date: 20221027
  Serious: Yes (Other)
  Sender: FDA-Public Use
  Company Number: US-ELI_LILLY_AND_COMPANY-US202205007481

PATIENT
  Age: 15 Year
  Sex: Female

DRUGS (3)
  1. GLUCAGON [Suspect]
     Active Substance: GLUCAGON
     Indication: Hypoglycaemia
     Dosage: UNK UNK, UNKNOWN
     Route: 065
  2. BAQSIMI [Suspect]
     Active Substance: GLUCAGON
     Indication: Blood glucose decreased
     Dosage: 3 MG, UNKNOWN
     Route: 065
  3. BAQSIMI [Suspect]
     Active Substance: GLUCAGON
     Indication: Type 1 diabetes mellitus

REACTIONS (3)
  - Hypoglycaemic seizure [Unknown]
  - Hypoglycaemic seizure [Recovered/Resolved]
  - Hypoglycaemic seizure [Unknown]

NARRATIVE: CASE EVENT DATE: 20200226
